FAERS Safety Report 4705795-5 (Version None)
Quarter: 2005Q3

REPORT INFORMATION
  Report Type: 
  Country: None (occurrence: None)
  Receive Date: 20050701
  Receipt Date: 20050624
  Transmission Date: 20060218
  Serious: Yes (Disabling)
  Sender: FDA-Public Use
  Company Number: NO-MERCK-0506NOR00023

PATIENT
  Age: 63 Year
  Sex: Male

DRUGS (6)
  1. VIOXX [Suspect]
     Indication: RHEUMATOID ARTHRITIS
     Route: 048
     Dates: start: 20010420, end: 20041001
  2. SIMVASTATIN [Concomitant]
     Route: 065
  3. METOPROLOL TARTRATE [Concomitant]
     Route: 065
  4. METHOTREXATE [Concomitant]
     Route: 065
  5. PREDNISOLONE [Concomitant]
     Route: 065
  6. MAGNESIUM OXIDE AND ASPIRIN [Concomitant]
     Route: 065

REACTIONS (1)
  - MYOCARDIAL INFARCTION [None]
